FAERS Safety Report 25692189 (Version 1)
Quarter: 2025Q3

REPORT INFORMATION
  Report Type: Spontaneous
  Country: US (occurrence: US)
  Receive Date: 20250818
  Receipt Date: 20250818
  Transmission Date: 20251020
  Serious: No
  Sender: SANOFI AVENTIS
  Company Number: US-SA-2025SA240456

PATIENT
  Sex: Male
  Weight: 8 kg

DRUGS (5)
  1. DUPIXENT [Suspect]
     Active Substance: DUPILUMAB
     Indication: Dermatitis atopic
     Dosage: 200 MG, Q4W
     Route: 058
  2. CLARITIN-D NOS [Concomitant]
     Active Substance: LORATADINE\PSEUDOEPHEDRINE SULFATE
  3. AQUAPHOR [Concomitant]
     Active Substance: PETROLATUM
  4. VASELINE PURE [Concomitant]
     Active Substance: PETROLATUM
  5. EPIPEN [Concomitant]
     Active Substance: EPINEPHRINE

REACTIONS (4)
  - Milk allergy [Unknown]
  - Histamine intolerance [Unknown]
  - Food allergy [Unknown]
  - Urticaria [Unknown]
